FAERS Safety Report 25755196 (Version 2)
Quarter: 2025Q3

REPORT INFORMATION
  Report Type: Spontaneous
  Country: US (occurrence: US)
  Receive Date: 20250903
  Receipt Date: 20250917
  Transmission Date: 20251020
  Serious: No
  Sender: ALEMBIC
  Company Number: US-ALEMBIC PHARMACUETICALS LIMITED-2025SCAL001117

PATIENT

DRUGS (2)
  1. DAPSONE [Suspect]
     Active Substance: DAPSONE
     Indication: Acne
     Route: 061
     Dates: start: 20250616
  2. TAZAROTENE [Concomitant]
     Active Substance: TAZAROTENE
     Indication: Acne
     Route: 065
     Dates: start: 202501

REACTIONS (3)
  - Skin irritation [Not Recovered/Not Resolved]
  - Instillation site foreign body sensation [Not Recovered/Not Resolved]
  - Product physical issue [Not Recovered/Not Resolved]

NARRATIVE: CASE EVENT DATE: 20250616
